FAERS Safety Report 19126134 (Version 4)
Quarter: 2021Q2

REPORT INFORMATION
  Report Type: Report from Study
  Country: US (occurrence: US)
  Receive Date: 20210412
  Receipt Date: 20210602
  Transmission Date: 20210717
  Serious: No
  Sender: FDA-Public Use
  Company Number: US-AGIOS-2104US02655

PATIENT

DRUGS (2)
  1. TIBSOVO [Suspect]
     Active Substance: IVOSIDENIB
     Dosage: 500 MILLIGRAM (TWO 250MG TABLETS), QD
     Route: 048
  2. TIBSOVO [Suspect]
     Active Substance: IVOSIDENIB
     Indication: CHOLANGIOCARCINOMA
     Dosage: 500 MILLIGRAM (TWO 250MG TABLETS), QD
     Route: 048

REACTIONS (3)
  - Nausea [Unknown]
  - Skin lesion [Unknown]
  - Off label use [Unknown]
